FAERS Safety Report 22004583 (Version 2)
Quarter: 2024Q3

REPORT INFORMATION
  Report Type: Spontaneous
  Country: US (occurrence: US)
  Receive Date: 20230217
  Receipt Date: 20240715
  Transmission Date: 20241016
  Serious: No
  Sender: BIOGEN
  Company Number: US-BIOGEN-2023BI01188255

PATIENT
  Sex: Male

DRUGS (6)
  1. TECFIDERA [Suspect]
     Active Substance: DIMETHYL FUMARATE
     Indication: Relapsing-remitting multiple sclerosis
     Route: 050
  2. COVID-19 VACCINE [Concomitant]
     Indication: COVID-19 prophylaxis
     Route: 050
  3. OCREVUS [Concomitant]
     Active Substance: OCRELIZUMAB
     Route: 050
  4. DALFAMPRIDINE [Concomitant]
     Active Substance: DALFAMPRIDINE
     Route: 050
  5. TAMSULOSIN [Concomitant]
     Active Substance: TAMSULOSIN
     Route: 050
  6. ATENOLOL [Concomitant]
     Active Substance: ATENOLOL
     Route: 050

REACTIONS (1)
  - Loss of therapeutic response [Unknown]
